FAERS Safety Report 9349670 (Version 4)
Quarter: 2013Q3

REPORT INFORMATION
  Report Type: Spontaneous
  Country: US (occurrence: US)
  Receive Date: 20130614
  Receipt Date: 20130918
  Transmission Date: 20140515
  Serious: Yes (Hospitalization, Disabling)
  Sender: FDA-Public Use
  Company Number: US-ROCHE-1236767

PATIENT
  Age: 52 Year
  Sex: Female
  Weight: 85.35 kg

DRUGS (12)
  1. XOLAIR [Suspect]
     Indication: ASTHMA
     Route: 058
  2. XOLAIR [Suspect]
     Route: 058
     Dates: start: 20040909
  3. FLOVENT [Concomitant]
     Indication: ASTHMA
     Dosage: 2 PUFFS
     Route: 065
     Dates: start: 19950807
  4. BYSTOLIC [Concomitant]
  5. MULTIVITAMIN [Concomitant]
     Route: 048
  6. ZETIA [Concomitant]
     Route: 048
  7. HYDROCHLOROTHIAZIDE [Concomitant]
     Route: 048
  8. SINGULAIR [Concomitant]
     Route: 048
  9. ASPIRIN [Concomitant]
     Route: 048
  10. PREVACID [Concomitant]
     Route: 048
  11. CHOLESTOFF COMPELTE [Concomitant]
     Route: 048
  12. CRESTOR [Concomitant]
     Route: 048

REACTIONS (5)
  - Cerebrovascular accident [Not Recovered/Not Resolved]
  - Lacunar infarction [Recovering/Resolving]
  - Nerve injury [Not Recovered/Not Resolved]
  - Sensory disturbance [Unknown]
  - Activities of daily living impaired [Not Recovered/Not Resolved]
